FAERS Safety Report 6608601-7 (Version None)
Quarter: 2010Q1

REPORT INFORMATION
  Report Type: 
  Country: None (occurrence: None)
  Receive Date: 20100226
  Receipt Date: 20100226
  Transmission Date: 20100710
  Serious: No
  Sender: FDA-Public Use
  Company Number: None

PATIENT
  Age: 76 Year
  Sex: Male
  Weight: 67.1324 kg

DRUGS (10)
  1. LORAZEPAM [Suspect]
     Dosage: 2.25MG PO
     Route: 048
  2. CHLORAL HYDRATE [Suspect]
     Dosage: 1500MG PO
     Route: 048
  3. NITROGLYCERIN [Concomitant]
  4. ASPIRIN [Concomitant]
  5. SIMVASTATIN [Concomitant]
  6. DEPAKOTE [Concomitant]
  7. DOCUSATE [Concomitant]
  8. RIVASTIGMINE PATCH [Concomitant]
  9. GABAPENTIN [Concomitant]
  10. TRAZODONE HCL [Concomitant]

REACTIONS (1)
  - DELIRIUM [None]
